FAERS Safety Report 26206886 (Version 1)
Quarter: 2025Q4

REPORT INFORMATION
  Report Type: Spontaneous
  Country: US (occurrence: US)
  Receive Date: 20251229
  Receipt Date: 20251229
  Transmission Date: 20260118
  Serious: Yes (Life-Threatening)
  Sender: Navitas Life Sciences Inc
  Company Number: US-ADVAGEN PHARMA LIMITED-ADGN-RB-2025-00139

PATIENT

DRUGS (2)
  1. CLONAZEPAM [Suspect]
     Active Substance: CLONAZEPAM
     Indication: Anxiety
     Dosage: 1 MILLIGRAM, BID (60 UNITS)
     Route: 048
     Dates: start: 20251012, end: 20251012
  2. CLONAZEPAM [Suspect]
     Active Substance: CLONAZEPAM
     Dosage: UNK (RECHALLENGE DOSE)
     Route: 065

REACTIONS (1)
  - Counterfeit product administered [Unknown]

NARRATIVE: CASE EVENT DATE: 20251012
